FAERS Safety Report 8904328 (Version 1)
Quarter: 2012Q4

REPORT INFORMATION
  Report Type: Report from Study
  Country: US (occurrence: US)
  Receive Date: 20121112
  Receipt Date: 20121112
  Transmission Date: 20130627
  Serious: Yes (Other)
  Sender: FDA-Public Use
  Company Number: US-ABBOTT-12P-163-1003836-00

PATIENT
  Age: 55 None
  Sex: Male
  Weight: 88.53 kg

DRUGS (7)
  1. HUMIRA [Suspect]
     Indication: PSORIASIS
     Dates: start: 201208, end: 201208
  2. HUMIRA [Suspect]
     Indication: PSORIATIC ARTHROPATHY
     Dates: start: 201208, end: 20121005
  3. WELLBUTRIN [Concomitant]
     Indication: DEPRESSION
  4. TRAMADOL [Concomitant]
     Indication: SPINAL OSTEOARTHRITIS
  5. CLOBETASOL [Concomitant]
     Indication: PRODUCT USED FOR UNKNOWN INDICATION
  6. ZYRTEC [Concomitant]
     Indication: PRODUCT USED FOR UNKNOWN INDICATION
  7. FLONASE [Concomitant]
     Indication: PRODUCT USED FOR UNKNOWN INDICATION

REACTIONS (31)
  - Hypoaesthesia [Recovered/Resolved]
  - Movement disorder [Recovered/Resolved]
  - Feeling abnormal [Recovered/Resolved]
  - Dyskinesia [Recovered/Resolved]
  - Speech disorder [Recovered/Resolved]
  - Cognitive disorder [Recovered/Resolved]
  - Blood pressure increased [Unknown]
  - Feeling abnormal [Not Recovered/Not Resolved]
  - Fatigue [Not Recovered/Not Resolved]
  - Insomnia [Unknown]
  - Weight decreased [Not Recovered/Not Resolved]
  - Adverse drug reaction [Unknown]
  - Tremor [Unknown]
  - Muscle spasms [Unknown]
  - Headache [Unknown]
  - Dizziness [Unknown]
  - Nausea [Unknown]
  - Hyperhidrosis [Unknown]
  - Speech disorder [Unknown]
  - Cognitive disorder [Unknown]
  - Dyskinesia [Unknown]
  - Dyskinesia [Unknown]
  - Dyskinesia [Unknown]
  - Malaise [Unknown]
  - Decreased appetite [Unknown]
  - Dyskinesia [Unknown]
  - Restless legs syndrome [Unknown]
  - Sleep disorder [Unknown]
  - Stress [Unknown]
  - Cerebral small vessel ischaemic disease [Unknown]
  - Nasal mucosal disorder [Unknown]
